FAERS Safety Report 5724153-8 (Version None)
Quarter: 2008Q2

REPORT INFORMATION
  Report Type: 
  Country: None (occurrence: None)
  Receive Date: 20080430
  Receipt Date: 20080424
  Transmission Date: 20081010
  Serious: Yes (Life-Threatening)
  Sender: FDA-Public Use
  Company Number: FR-ABBOTT-08P-056-0448976-00

PATIENT
  Age: 38 Year
  Sex: Male

DRUGS (12)
  1. KALETRA [Suspect]
     Indication: HIV INFECTION
     Dosage: 2 TABLETS X 2
     Route: 048
     Dates: start: 20070614, end: 20080208
  2. ISONIAZID [Suspect]
     Indication: DRUG USE FOR UNKNOWN INDICATION
     Dosage: 2 DF DAILY DOSE
     Route: 048
     Dates: start: 20070511, end: 20080208
  3. RIFABUTINE [Suspect]
     Indication: IMMUNE RECONSTITUTION SYNDROME
     Dosage: 150MG X 3 PER WEEK
     Route: 048
     Dates: start: 20070614, end: 20070917
  4. RIFABUTINE [Suspect]
     Dosage: 300 MG X 3 PER WEEK
     Route: 048
     Dates: start: 20070917, end: 20080208
  5. EMTRICITABINE, TENOFOVIR DISOPROXIL [Concomitant]
     Indication: DRUG USE FOR UNKNOWN INDICATION
     Dosage: 1 DF DAILY DOSE
     Route: 048
     Dates: start: 20070614
  6. ETHAMBUTOL HYDROCHLORIDE [Concomitant]
     Indication: DRUG USE FOR UNKNOWN INDICATION
     Route: 048
     Dates: start: 20070511, end: 20070713
  7. ETHAMBUTOL HYDROCHLORIDE [Concomitant]
     Route: 048
     Dates: start: 20070911, end: 20071207
  8. PYRAZINAMIDE [Concomitant]
     Indication: DRUG USE FOR UNKNOWN INDICATION
     Route: 048
     Dates: start: 20070511, end: 20070713
  9. PYRAZINAMIDE [Concomitant]
     Route: 048
     Dates: start: 20070911, end: 20071207
  10. BACTRIM [Concomitant]
     Indication: DRUG USE FOR UNKNOWN INDICATION
     Dosage: 1 DF DAILY DOSE
     Route: 048
     Dates: start: 20070511
  11. ISONIAZIDE, RIFAMPICINE [Concomitant]
     Indication: DRUG USE FOR UNKNOWN INDICATION
     Dosage: 2 DF DAILY DOSE
     Route: 048
     Dates: start: 20080208
  12. EFAVIRENZ [Concomitant]
     Indication: DRUG USE FOR UNKNOWN INDICATION
     Dosage: 1 DF DAILY DOSE
     Route: 048
     Dates: start: 20080208

REACTIONS (4)
  - CELL DEATH [None]
  - CHOLESTASIS [None]
  - LEUKOPENIA [None]
  - NEUTROPENIA [None]
